FAERS Safety Report 5355678-5 (Version None)
Quarter: 2007Q2

REPORT INFORMATION
  Report Type: 
  Country: None (occurrence: None)
  Receive Date: 20070530
  Receipt Date: 20070306
  Transmission Date: 20071010
  Serious: Yes (Other)
  Sender: FDA-Public Use
  Company Number: US200703001680

PATIENT
  Age: 4 Year
  Sex: Male

DRUGS (2)
  1. ZYPREXA [Suspect]
     Indication: ANGER
     Dosage: ORAL
     Route: 048
     Dates: start: 20040101, end: 20050101
  2. LAMICTAL [Concomitant]

REACTIONS (1)
  - GRAND MAL CONVULSION [None]
